FAERS Safety Report 4424463-0 (Version None)
Quarter: 2004Q3

REPORT INFORMATION
  Report Type: 
  Country: None (occurrence: None)
  Receive Date: 20040812
  Receipt Date: 20040504
  Transmission Date: 20050211
  Serious: Yes (Other)
  Sender: FDA-Public Use
  Company Number: US-GLAXOSMITHKLINE-A0509451A

PATIENT
  Age: 43 Year
  Sex: Female
  Weight: 60 kg

DRUGS (5)
  1. WELLBUTRIN [Suspect]
     Indication: DEPRESSION
     Route: 048
     Dates: start: 20031120, end: 20040402
  2. TRILEPTAL [Suspect]
     Indication: CONVULSION
     Route: 048
     Dates: start: 20040313, end: 20040413
  3. LAMICTAL [Concomitant]
     Indication: DEPRESSION
     Dosage: 100MG PER DAY
     Route: 048
     Dates: start: 20040101
  4. BENADRYL [Concomitant]
     Indication: SLEEP DISORDER
     Dosage: 50MG AT NIGHT
     Dates: start: 20020219
  5. NICORETTE [Concomitant]
     Indication: SMOKING CESSATION THERAPY
     Dosage: 4TAB PER DAY
     Route: 048
     Dates: start: 20021001

REACTIONS (7)
  - AMNESIA [None]
  - CONTUSION [None]
  - CONVULSION [None]
  - FALL [None]
  - HEAD INJURY [None]
  - MEDICATION ERROR [None]
  - SEDATION [None]
